FAERS Safety Report 9253915 (Version 2)
Quarter: 2014Q1

REPORT INFORMATION
  Report Type: Spontaneous
  Country: US (occurrence: US)
  Receive Date: 20130425
  Receipt Date: 20140121
  Transmission Date: 20141002
  Serious: No
  Sender: FDA-Public Use
  Company Number: US-ASTRAZENECA-2013SE27617

PATIENT
  Age: 25295 Day
  Sex: Female
  Weight: 67.6 kg

DRUGS (14)
  1. NEXIUM [Suspect]
     Indication: GASTROOESOPHAGEAL REFLUX DISEASE
     Route: 048
     Dates: start: 2007, end: 2012
  2. NEXIUM [Suspect]
     Indication: GASTROOESOPHAGEAL REFLUX DISEASE
     Route: 048
     Dates: start: 20070727
  3. GABAPENTIN [Concomitant]
     Dates: start: 20070821
  4. METHYLPHENID [Concomitant]
     Dates: start: 20070727
  5. LEXAPRO [Concomitant]
     Dates: start: 20070821
  6. SEROQUEL [Concomitant]
     Route: 048
     Dates: start: 20070821
  7. TRAZODONE [Concomitant]
     Dates: start: 20080715
  8. VITAMIN D [Concomitant]
     Dates: start: 20090409
  9. AZITHROMYCIN [Concomitant]
     Dates: start: 20090409
  10. CYCLOBENZAPRINE [Concomitant]
     Dates: start: 20090409
  11. ALENDRONATE [Concomitant]
     Dates: start: 20100804
  12. CYMBALTA [Concomitant]
     Dates: start: 20100901
  13. BACLOFEN [Concomitant]
     Dates: start: 20100903
  14. NAPROXEN [Concomitant]
     Dates: start: 20100909

REACTIONS (5)
  - Osteoporosis [Unknown]
  - Bone disorder [Unknown]
  - Multiple fractures [Unknown]
  - Osteoarthritis [Unknown]
  - Osteopenia [Unknown]
